FAERS Safety Report 8385646-0 (Version None)
Quarter: 2012Q2

REPORT INFORMATION
  Report Type: 
  Country: None (occurrence: None)
  Receive Date: 20120525
  Receipt Date: 20120523
  Transmission Date: 20120825
  Serious: No
  Sender: FDA-Public Use
  Company Number: US-PFIZER INC-2012124975

PATIENT
  Sex: Female
  Weight: 73.5 kg

DRUGS (5)
  1. DETROL LA [Concomitant]
     Dosage: 4 MG, UNK
  2. ZOFRAN [Concomitant]
     Dosage: 8 MG, UNK
  3. SIMVASTATIN [Concomitant]
     Dosage: 40 MG, UNK
  4. SUTENT [Suspect]
     Indication: METASTATIC RENAL CELL CARCINOMA
     Dosage: 50 MG, 42 DAYS CYCLE
     Dates: start: 20120511
  5. LISINOPRIL [Concomitant]
     Dosage: 2.5 MG, UNK

REACTIONS (2)
  - BACK PAIN [None]
  - BLOOD PRESSURE INCREASED [None]
